FAERS Safety Report 23774296 (Version 2)
Quarter: 2024Q2

REPORT INFORMATION
  Report Type: Spontaneous
  Country: CA (occurrence: CA)
  Receive Date: 20240423
  Receipt Date: 20240423
  Transmission Date: 20240715
  Serious: Yes (Death, Life-Threatening, Hospitalization, Other)
  Sender: FDA-Public Use
  Company Number: CA-TEVA-VS-3186973

PATIENT
  Age: 64 Year
  Sex: Male

DRUGS (16)
  1. METHOTREXATE [Suspect]
     Active Substance: METHOTREXATE
     Indication: Rheumatoid arthritis
     Dosage: DOSAGE FORM:NOT SPECIFIED
     Route: 058
  2. DEXAMETHASONE [Suspect]
     Active Substance: DEXAMETHASONE
     Indication: COVID-19
     Dosage: DOSAGE FORM:NOT SPECIFIED
     Route: 042
  3. DEXAMETHASONE [Suspect]
     Active Substance: DEXAMETHASONE
     Indication: COVID-19
     Dosage: DOSAGE FORM:NOT SPECIFIED
     Route: 042
  4. HYDROXYCHLOROQUINE [Suspect]
     Active Substance: HYDROXYCHLOROQUINE
     Indication: Rheumatoid arthritis
     Route: 048
  5. SULFASALAZINE [Suspect]
     Active Substance: SULFASALAZINE
     Indication: Rheumatoid arthritis
     Dosage: DOSAGE FORM:NOT SPECIFIED
     Route: 048
  6. CEFTRIAXONE [Concomitant]
     Active Substance: CEFTRIAXONE\CEFTRIAXONE SODIUM
     Indication: Evidence based treatment
     Route: 065
  7. CEFTRIAXONE [Concomitant]
     Active Substance: CEFTRIAXONE\CEFTRIAXONE SODIUM
     Indication: Evidence based treatment
     Route: 065
  8. OXYGEN [Concomitant]
     Active Substance: OXYGEN
     Indication: Respiratory distress
     Dosage: DOSE FORM:GAS FOR INHALATION
  9. OXYGEN [Concomitant]
     Active Substance: OXYGEN
     Indication: Respiratory distress
     Dosage: DOSE FORM:GAS FOR INHALATION
  10. AZITHROMYCIN ANHYDROUS [Concomitant]
     Active Substance: AZITHROMYCIN ANHYDROUS
     Indication: Evidence based treatment
     Dosage: DOSAGE FORM:NOT SPECIFIED
     Route: 065
  11. AZITHROMYCIN ANHYDROUS [Concomitant]
     Active Substance: AZITHROMYCIN ANHYDROUS
     Indication: Evidence based treatment
     Dosage: DOSAGE FORM:NOT SPECIFIED
     Route: 065
  12. ALBENDAZOLE [Concomitant]
     Active Substance: ALBENDAZOLE
     Indication: Product used for unknown indication
     Route: 048
  13. IVERMECTIN [Concomitant]
     Active Substance: IVERMECTIN
     Indication: Product used for unknown indication
     Route: 058
  14. IVERMECTIN [Concomitant]
     Active Substance: IVERMECTIN
     Indication: Product used for unknown indication
     Dosage: INTRA-NASAL
  15. PIPERACILLIN AND TAZOBACTAM [Concomitant]
     Active Substance: PIPERACILLIN SODIUM\TAZOBACTAM SODIUM
     Indication: Bacteraemia
     Route: 065
  16. VANCOMYCIN [Concomitant]
     Active Substance: VANCOMYCIN
     Indication: Bacteraemia
     Route: 065

REACTIONS (23)
  - Acute kidney injury [Fatal]
  - Bacteraemia [Fatal]
  - Klebsiella infection [Fatal]
  - Condition aggravated [Fatal]
  - Sepsis [Fatal]
  - COVID-19 [Fatal]
  - Respiratory failure [Fatal]
  - Strongyloidiasis [Fatal]
  - Disseminated strongyloidiasis [Fatal]
  - Bifidobacterium infection [Fatal]
  - Anuria [Fatal]
  - Decreased appetite [Fatal]
  - Diarrhoea [Fatal]
  - Eosinophilia [Fatal]
  - Hypotension [Fatal]
  - Hypoxia [Fatal]
  - Lung opacity [Fatal]
  - Pulmonary oedema [Fatal]
  - Pyrexia [Fatal]
  - Malaise [Fatal]
  - Bacterial infection [Fatal]
  - Abdominal pain upper [Fatal]
  - Respiratory distress [Fatal]
